FAERS Safety Report 5946376-5 (Version None)
Quarter: 2008Q4

REPORT INFORMATION
  Report Type: 
  Country: None (occurrence: None)
  Receive Date: 20081106
  Receipt Date: 20081027
  Transmission Date: 20090506
  Serious: Yes (Hospitalization)
  Sender: FDA-Public Use
  Company Number: 2008BI028735

PATIENT
  Age: 32 Year
  Sex: Female

DRUGS (5)
  1. TYSABRI [Suspect]
     Indication: RELAPSING-REMITTING MULTIPLE SCLEROSIS
     Dosage: 300 MG;QM;IV, 300 MG;QM;IV
     Route: 042
     Dates: start: 20070816, end: 20080603
  2. TYSABRI [Suspect]
     Indication: RELAPSING-REMITTING MULTIPLE SCLEROSIS
     Dosage: 300 MG;QM;IV, 300 MG;QM;IV
     Route: 042
     Dates: start: 20080801, end: 20080801
  3. DEPAKENE [Concomitant]
  4. KEPPRA [Concomitant]
  5. COPAZONE [Concomitant]

REACTIONS (3)
  - EPILEPSY [None]
  - LYMPHOCYTOSIS [None]
  - MULTIPLE SCLEROSIS RELAPSE [None]
